FAERS Safety Report 4598145-9 (Version None)
Quarter: 2005Q1

REPORT INFORMATION
  Report Type: 
  Country: None (occurrence: None)
  Receive Date: 20050302
  Receipt Date: 20050223
  Transmission Date: 20050727
  Serious: Yes (Life-Threatening)
  Sender: FDA-Public Use
  Company Number: 2005SE01108

PATIENT
  Age: 78 Year
  Sex: Male
  Weight: 57 kg

DRUGS (5)
  1. BLOPRESS [Suspect]
     Indication: HYPERTENSION
     Dosage: 8 MG BID PO
     Route: 048
     Dates: start: 20041028, end: 20041109
  2. NORVASC [Suspect]
     Dosage: 5 MG BID PO
     Route: 048
     Dates: start: 20041028, end: 20041108
  3. NORVASC [Suspect]
     Dosage: 5 MG QD PO
     Route: 048
     Dates: start: 20041109
  4. TAKEPRON [Concomitant]
  5. AMARYL [Concomitant]

REACTIONS (4)
  - BLOOD PRESSURE DECREASED [None]
  - DIZZINESS [None]
  - HYPOAESTHESIA [None]
  - PALPITATIONS [None]
